FAERS Safety Report 10480822 (Version 1)
Quarter: 2014Q3

REPORT INFORMATION
  Report Type: Spontaneous
  Country: US (occurrence: US)
  Receive Date: 20140929
  Receipt Date: 20140929
  Transmission Date: 20150326
  Serious: Yes (Other)
  Sender: FDA-Public Use
  Company Number: US-PFIZER INC-2014263025

PATIENT
  Age: 23 Year
  Sex: Female
  Weight: 106.58 kg

DRUGS (2)
  1. SINEQUAN [Suspect]
     Active Substance: DOXEPIN HYDROCHLORIDE
     Indication: DEPRESSION
     Dosage: 100 MG, 1X/DAY (AT NIGHT)
     Route: 048
     Dates: start: 20140913, end: 20140913
  2. PROZAC [Concomitant]
     Active Substance: FLUOXETINE HYDROCHLORIDE
     Dosage: UNK

REACTIONS (5)
  - Suicide attempt [Unknown]
  - Tremor [Not Recovered/Not Resolved]
  - Feeling abnormal [Unknown]
  - Overdose [Unknown]
  - Convulsion [Not Recovered/Not Resolved]

NARRATIVE: CASE EVENT DATE: 201409
